FAERS Safety Report 8156264-4 (Version None)
Quarter: 2012Q1

REPORT INFORMATION
  Report Type: 
  Country: None (occurrence: None)
  Receive Date: 20120103
  Receipt Date: 20111004
  Transmission Date: 20120608
  Serious: No
  Sender: FDA-Public Use
  Company Number: AE-2011-000770

PATIENT
  Age: 53 Year
  Sex: Male
  Weight: 74.8435 kg

DRUGS (8)
  1. PLAVIX [Concomitant]
  2. LISINOPRIL [Concomitant]
  3. ASPIRIN [Concomitant]
  4. PEGASYS [Concomitant]
  5. COPEGUS [Concomitant]
  6. INCIVEK [Suspect]
     Dosage: 2250 MG (750 MG, 3 IN 1 D), ORAL
     Route: 048
     Dates: start: 20110804
  7. XANAX [Concomitant]
  8. TOPROL-XL [Concomitant]

REACTIONS (4)
  - DRY MOUTH [None]
  - RASH ERYTHEMATOUS [None]
  - FATIGUE [None]
  - FAECES DISCOLOURED [None]
